FAERS Safety Report 18027624 (Version 6)
Quarter: 2021Q2

REPORT INFORMATION
  Report Type: Spontaneous
  Country: AU (occurrence: AU)
  Receive Date: 20200715
  Receipt Date: 20210615
  Transmission Date: 20210717
  Serious: Yes (Hospitalization, Other)
  Sender: FDA-Public Use
  Company Number: AU-GILEAD-2020-0482049

PATIENT
  Age: 75 Year
  Sex: Female

DRUGS (2)
  1. AMBRISENTAN [Suspect]
     Active Substance: AMBRISENTAN
     Indication: PRODUCT USED FOR UNKNOWN INDICATION
     Dosage: 10 MG, QD
     Route: 065
  2. TADALAFIL. [Suspect]
     Active Substance: TADALAFIL
     Indication: PRODUCT USED FOR UNKNOWN INDICATION
     Dosage: 20 MG, QD, 20MG (2 TABLETS A DAY)
     Route: 065

REACTIONS (9)
  - Oesophageal disorder [Recovered/Resolved]
  - Deafness unilateral [Unknown]
  - Dyspnoea [Unknown]
  - Arthralgia [Unknown]
  - Road traffic accident [Unknown]
  - Upper limb fracture [Unknown]
  - Thrombosis [Unknown]
  - Glaucoma [Unknown]
  - Dyspnoea exertional [Unknown]
